FAERS Safety Report 6616209-2 (Version None)
Quarter: 2010Q1

REPORT INFORMATION
  Report Type: 
  Country: None (occurrence: None)
  Receive Date: 20100305
  Receipt Date: 20100302
  Transmission Date: 20100710
  Serious: Yes (Death, Other)
  Sender: FDA-Public Use
  Company Number: PHHY2009GB46759

PATIENT
  Sex: Female

DRUGS (8)
  1. CLOZARIL [Suspect]
     Indication: SCHIZOPHRENIA
     Dosage: UNK
     Dates: start: 19970110
  2. SULPIRIDE [Concomitant]
     Indication: SCHIZOPHRENIA
     Dosage: 1600 MG DAILY
     Route: 048
  3. SERTRALINE HCL [Concomitant]
     Indication: DEPRESSION
     Dosage: 100MG DAILY
     Route: 048
  4. SIMVASTATIN [Concomitant]
     Dosage: UNK
     Route: 048
  5. ASPIRIN [Concomitant]
     Dosage: FOR MORE TAHN 2 YEARS
     Route: 048
  6. METFORMIN [Concomitant]
     Dosage: FOR MORE THAN 2 YEARS
     Route: 048
  7. SERETIDE [Concomitant]
  8. CHLORAMPHENICOL [Concomitant]

REACTIONS (12)
  - ASPIRATION [None]
  - BRAIN OEDEMA [None]
  - CHOKING [None]
  - CIRCULATORY COLLAPSE [None]
  - HYPOXIA [None]
  - LARYNGEAL ERYTHEMA [None]
  - LARYNGEAL HAEMORRHAGE [None]
  - OBSTRUCTIVE AIRWAYS DISORDER [None]
  - PHARYNGEAL ERYTHEMA [None]
  - TYPE 2 DIABETES MELLITUS [None]
  - UPPER RESPIRATORY TRACT CONGESTION [None]
  - VOMITING [None]
